FAERS Safety Report 19994861 (Version 2)
Quarter: 2021Q4

REPORT INFORMATION
  Report Type: Spontaneous
  Country: US (occurrence: US)
  Receive Date: 20211026
  Receipt Date: 20211208
  Transmission Date: 20220303
  Serious: No
  Sender: FDA-Public Use
  Company Number: US-BEH-2021136937

PATIENT
  Age: 59 Year
  Sex: Male

DRUGS (6)
  1. HIZENTRA [Suspect]
     Active Substance: HUMAN IMMUNOGLOBULIN G
     Indication: Chronic inflammatory demyelinating polyradiculoneuropathy
     Dosage: 19 GRAM, QW
     Route: 058
     Dates: start: 20201002
  2. HIZENTRA [Suspect]
     Active Substance: HUMAN IMMUNOGLOBULIN G
     Dosage: 19 GRAM, QW
     Route: 058
     Dates: start: 20201002
  3. HIZENTRA [Suspect]
     Active Substance: HUMAN IMMUNOGLOBULIN G
     Dosage: 19 GRAM, QW
     Route: 058
     Dates: start: 20201002
  4. OXCARBAZEPINE [Concomitant]
     Active Substance: OXCARBAZEPINE
     Dosage: 150 MILLIGRAM, BID
  5. GABAPENTIN [Concomitant]
     Active Substance: GABAPENTIN
     Dosage: 2 DOSAGE FORM, BID
  6. CYMBALTA [Concomitant]
     Active Substance: DULOXETINE HYDROCHLORIDE
     Dosage: 20 MILLIGRAM, BID

REACTIONS (5)
  - Injection site swelling [Unknown]
  - No adverse event [Unknown]
  - Wrong technique in product usage process [Unknown]
  - Injection site warmth [Recovered/Resolved]
  - Injection site swelling [Recovered/Resolved]

NARRATIVE: CASE EVENT DATE: 20211101
